FAERS Safety Report 5796203-4 (Version None)
Quarter: 2008Q3

REPORT INFORMATION
  Report Type: 
  Country: None (occurrence: None)
  Receive Date: 20080701
  Receipt Date: 20080625
  Transmission Date: 20090109
  Serious: Yes (Death)
  Sender: FDA-Public Use
  Company Number: GB-JNJFOC-20080606499

PATIENT
  Age: 70 Year
  Sex: Female

DRUGS (1)
  1. REOPRO [Suspect]
     Indication: DRUG USE FOR UNKNOWN INDICATION

REACTIONS (1)
  - RETROPERITONEAL HAEMORRHAGE [None]
